FAERS Safety Report 5893828-2 (Version None)
Quarter: 2008Q3

REPORT INFORMATION
  Report Type: 
  Country: None (occurrence: None)
  Receive Date: 20080923
  Receipt Date: 20071029
  Transmission Date: 20090109
  Serious: No
  Sender: FDA-Public Use
  Company Number: US-ASTRAZENECA-2007UW25025

PATIENT
  Age: 56 Year
  Sex: Female
  Weight: 95.3 kg

DRUGS (7)
  1. SEROQUEL [Suspect]
     Indication: SLEEP DISORDER
     Route: 048
     Dates: start: 20070601
  2. VERAPAMIL [Concomitant]
  3. PREVACID [Concomitant]
  4. LIPITOR [Concomitant]
  5. NALOXYN [Concomitant]
  6. EFFEXOR [Concomitant]
  7. TRAZODONE HCL [Concomitant]

REACTIONS (5)
  - HUNGER [None]
  - HYPERPHAGIA [None]
  - HYPERSOMNIA [None]
  - ILL-DEFINED DISORDER [None]
  - WEIGHT INCREASED [None]
